FAERS Safety Report 17401665 (Version 1)
Quarter: 2020Q1

REPORT INFORMATION
  Report Type: Spontaneous
  Country: US (occurrence: US)
  Receive Date: 20200211
  Receipt Date: 20200211
  Transmission Date: 20200409
  Serious: No
  Sender: FDA-Public Use
  Company Number: US-VERTEX PHARMACEUTICALS-2020-002229

PATIENT
  Age: 25 Year
  Sex: Male

DRUGS (16)
  1. HYDROCORT [HYDROCORTISONE ACETATE] [Concomitant]
  2. VIMPAT [Concomitant]
     Active Substance: LACOSAMIDE
  3. BRIVIACT [Concomitant]
     Active Substance: BRIVARACETAM
  4. PROPANOLOL [PROPRANOLOL] [Concomitant]
     Active Substance: PROPRANOLOL HYDROCHLORIDE
  5. PULMOZYME [Concomitant]
     Active Substance: DORNASE ALFA
  6. OMEPRAZOLE. [Concomitant]
     Active Substance: OMEPRAZOLE
  7. LORAZEPAM. [Concomitant]
     Active Substance: LORAZEPAM
  8. CLOBAZAM. [Concomitant]
     Active Substance: CLOBAZAM
  9. METHIMAZOLE. [Concomitant]
     Active Substance: METHIMAZOLE
  10. ADVAIR HFA [Concomitant]
     Active Substance: FLUTICASONE PROPIONATE\SALMETEROL XINAFOATE
  11. VENTOLIN [Concomitant]
     Active Substance: ALBUTEROL SULFATE
  12. DOXYCYCLINE. [Concomitant]
     Active Substance: DOXYCYCLINE
  13. CREON [Concomitant]
     Active Substance: PANCRELIPASE AMYLASE\PANCRELIPASE LIPASE\PANCRELIPASE PROTEASE
  14. CORTEF [Concomitant]
     Active Substance: HYDROCORTISONE
  15. TRIKAFTA [Suspect]
     Active Substance: ELEXACAFTOR\IVACAFTOR\TEZACAFTOR
     Indication: CYSTIC FIBROSIS
     Dosage: 2 TABLETS OF 100MG ELEXACAFTOR/ 50 MG TEZACAFTOR/ 75 MG IVACAFTOR AM; 1 TABLET 150 MG IVACAFTOR PM
     Route: 048
     Dates: start: 20200110
  16. FLUTICASONE. [Concomitant]
     Active Substance: FLUTICASONE

REACTIONS (2)
  - Peripheral swelling [Not Recovered/Not Resolved]
  - Hypersomnia [Not Recovered/Not Resolved]

NARRATIVE: CASE EVENT DATE: 202001
